FAERS Safety Report 14325770 (Version 1)
Quarter: 2017Q4

REPORT INFORMATION
  Report Type: Spontaneous
  Country: US (occurrence: US)
  Receive Date: 20171226
  Receipt Date: 20171226
  Transmission Date: 20180321
  Serious: Yes (Death, Hospitalization)
  Sender: FDA-Public Use
  Company Number: US-NOVOPROD-577903

PATIENT
  Age: 81 Year
  Sex: Female
  Weight: 88.44 kg

DRUGS (2)
  1. NOVOLOG [Suspect]
     Active Substance: INSULIN ASPART
     Indication: TYPE 2 DIABETES MELLITUS
     Dosage: 10 TO 15 U BEFORE EACH MEAL
     Route: 058
  2. LEVEMIR [Suspect]
     Active Substance: INSULIN DETEMIR
     Indication: TYPE 2 DIABETES MELLITUS
     Dosage: 50 U IN THE MORNING AND 45 U IN THE EVENING
     Route: 058

REACTIONS (4)
  - Hepatic cancer [Fatal]
  - Gallbladder disorder [Fatal]
  - Pancreatic carcinoma [Fatal]
  - Fall [Recovered/Resolved]

NARRATIVE: CASE EVENT DATE: 2015
